FAERS Safety Report 6871356-5 (Version None)
Quarter: 2010Q3

REPORT INFORMATION
  Report Type: 
  Country: None (occurrence: None)
  Receive Date: 20100723
  Receipt Date: 20100715
  Transmission Date: 20110219
  Serious: Yes (Hospitalization, Other)
  Sender: FDA-Public Use
  Company Number: US-PFIZER INC-2009216864

PATIENT
  Sex: Male
  Weight: 96.615 kg

DRUGS (6)
  1. NORVASC [Suspect]
     Indication: HYPERTENSION
  2. NORVASC [Suspect]
     Dosage: 10 MG, 1X/DAY
  3. NORVASC [Suspect]
     Dosage: 7.5 MG, 1X/DAY
     Route: 048
     Dates: start: 20090501
  4. RITALIN [Suspect]
     Indication: ATTENTION DEFICIT/HYPERACTIVITY DISORDER
     Dosage: 20 MG, 1X/DAY
     Route: 048
  5. CELEXA [Suspect]
     Dosage: 20 MG, DAILY
     Route: 048
  6. EXTRA STRENGTH TYLENOL [Concomitant]

REACTIONS (3)
  - ANGIOEDEMA [None]
  - GENERALISED OEDEMA [None]
  - LYMPHOEDEMA [None]
